FAERS Safety Report 21628498 (Version 1)
Quarter: 2022Q4

REPORT INFORMATION
  Report Type: Spontaneous
  Country: CA (occurrence: None)
  Receive Date: 20221122
  Receipt Date: 20221122
  Transmission Date: 20230113
  Serious: Yes (Other)
  Sender: FDA-Public Use
  Company Number: CA-ROCHE-3220453

PATIENT
  Sex: Female

DRUGS (3)
  1. AVASTIN [Suspect]
     Active Substance: BEVACIZUMAB
     Indication: Age-related macular degeneration
     Dosage: NO
     Route: 050
  2. VABYSMO [Suspect]
     Active Substance: FARICIMAB-SVOA
     Indication: Age-related macular degeneration
     Dosage: NO
     Route: 050
  3. LUCENTIS [Concomitant]
     Active Substance: RANIBIZUMAB
     Indication: Age-related macular degeneration

REACTIONS (4)
  - Glaucoma [Unknown]
  - Drug ineffective [Not Recovered/Not Resolved]
  - Auditory disorder [Unknown]
  - Aggression [Unknown]
